FAERS Safety Report 5671690-0 (Version None)
Quarter: 2008Q2

REPORT INFORMATION
  Report Type: 
  Country: None (occurrence: None)
  Receive Date: 20080229
  Receipt Date: 20071231
  Transmission Date: 20081010
  Serious: No
  Sender: FDA-Public Use
  Company Number: PHEH2007US16223

PATIENT
  Age: 79 Year
  Sex: Female

DRUGS (1)
  1. EXJADE [Suspect]
     Dosage: 1000 MG, QD,
     Dates: start: 20071220

REACTIONS (2)
  - RASH PAPULAR [None]
  - RASH PRURITIC [None]
